FAERS Safety Report 9230554 (Version 1)
Quarter: 2013Q2

REPORT INFORMATION
  Report Type: Spontaneous
  Country: PL (occurrence: PL)
  Receive Date: 20130415
  Receipt Date: 20130415
  Transmission Date: 20140414
  Serious: Yes (Other)
  Sender: FDA-Public Use
  Company Number: PL-BAYER-2013-040181

PATIENT
  Age: 30 Year
  Sex: Female

DRUGS (1)
  1. LEVONORGESTREL [Suspect]
     Indication: CONTRACEPTION
     Dosage: 20 MCG/24HR, CONT
     Route: 015

REACTIONS (6)
  - Device dislocation [None]
  - Device dislocation [None]
  - Pregnancy with contraceptive device [None]
  - Medication error [None]
  - Cervicitis streptococcal [None]
  - Escherichia test positive [None]
